FAERS Safety Report 6248676-0 (Version None)
Quarter: 2009Q2

REPORT INFORMATION
  Report Type: 
  Country: None (occurrence: None)
  Receive Date: 20090624
  Receipt Date: 20090624
  Transmission Date: 20091009
  Serious: No
  Sender: FDA-Public Use
  Company Number: None

PATIENT
  Age: 81 Year
  Sex: Female
  Weight: 56.7 kg

DRUGS (15)
  1. WARFARIN SODIUM [Suspect]
     Indication: ATRIAL FIBRILLATION
     Dosage: 5-2 MG PO QD
     Route: 048
     Dates: start: 20090506, end: 20090510
  2. LEVOTHYROXINE SODIUM [Concomitant]
  3. M.V.I. [Concomitant]
  4. LANSOPRAZOLE [Concomitant]
  5. TIMOLOL EYEDROP [Concomitant]
  6. CITALOPRAM HYDROBROMIDE [Concomitant]
  7. ASPIRIN [Concomitant]
  8. INSULIN [Concomitant]
  9. CACO3 [Concomitant]
  10. ASCORBIC ACID [Concomitant]
  11. FERROUS SULFATE TAB [Concomitant]
  12. METRONIDAZOLE [Concomitant]
  13. CEFEPIME [Concomitant]
  14. VANCOMYCIN HCL [Concomitant]
  15. AMIODARONE HCL [Concomitant]

REACTIONS (3)
  - CATHETER SITE HAEMORRHAGE [None]
  - HAEMOGLOBIN DECREASED [None]
  - INTERNATIONAL NORMALISED RATIO INCREASED [None]
